FAERS Safety Report 5678918-1 (Version None)
Quarter: 2008Q1

REPORT INFORMATION
  Report Type: 
  Country: None (occurrence: None)
  Receive Date: 20080325
  Receipt Date: 20080313
  Transmission Date: 20080703
  Serious: Yes (Other)
  Sender: FDA-Public Use
  Company Number: PHHY2008AU03060

PATIENT
  Age: 55 Year
  Sex: Male

DRUGS (1)
  1. NEORAL [Suspect]
     Indication: LIVER TRANSPLANT
     Dates: start: 20020501

REACTIONS (3)
  - MOBILITY DECREASED [None]
  - PAIN [None]
  - UPPER LIMB FRACTURE [None]
